FAERS Safety Report 20835432 (Version 1)
Quarter: 2022Q2

REPORT INFORMATION
  Report Type: Spontaneous
  Country: DE (occurrence: DE)
  Receive Date: 20220516
  Receipt Date: 20220516
  Transmission Date: 20220721
  Serious: Yes (Other)
  Sender: FDA-Public Use
  Company Number: DE-ROCHE-3088021

PATIENT
  Age: 51 Year
  Sex: Female
  Weight: 57.6 kg

DRUGS (12)
  1. IMBRUVICA [Suspect]
     Active Substance: IBRUTINIB
     Indication: Diffuse large B-cell lymphoma
     Dosage: 2ND LINE, 3 CYCLE
     Route: 065
     Dates: start: 20190911, end: 20191106
  2. RITUXIMAB [Suspect]
     Active Substance: RITUXIMAB
     Indication: Diffuse large B-cell lymphoma
     Dosage: 1ST LINE, R-CHOP, 1 CYCLE
     Route: 065
     Dates: start: 20190819, end: 20190823
  3. DOXORUBICIN HYDROCHLORIDE [Suspect]
     Active Substance: DOXORUBICIN HYDROCHLORIDE
     Indication: Diffuse large B-cell lymphoma
     Route: 065
  4. CARBOPLATIN [Suspect]
     Active Substance: CARBOPLATIN
     Indication: Diffuse large B-cell lymphoma
     Dosage: 4TH LINE, 1 CYCLE
     Route: 065
     Dates: start: 20191115, end: 20191118
  5. IDELALISIB [Suspect]
     Active Substance: IDELALISIB
     Indication: Diffuse large B-cell lymphoma
     Dosage: 1 CYCLE
     Route: 065
     Dates: start: 20191108, end: 20191113
  6. ETOPOSIDE [Suspect]
     Active Substance: ETOPOSIDE
     Indication: Product used for unknown indication
     Route: 065
  7. CYCLOPHOSPHAMIDE [Suspect]
     Active Substance: CYCLOPHOSPHAMIDE
     Indication: Diffuse large B-cell lymphoma
     Dosage: 1ST LINE, R-CHOP, 1 CYCLE
     Route: 065
     Dates: start: 20190819, end: 20190819
  8. PREDNISONE [Suspect]
     Active Substance: PREDNISONE
     Indication: Diffuse large B-cell lymphoma
     Route: 065
  9. VINCRISTINE SULFATE [Suspect]
     Active Substance: VINCRISTINE SULFATE
     Indication: Product used for unknown indication
     Route: 065
  10. OBINUTUZUMAB [Suspect]
     Active Substance: OBINUTUZUMAB
     Indication: Diffuse large B-cell lymphoma
     Dosage: 1 CYCLE
     Route: 042
     Dates: start: 20191108, end: 20191108
  11. OBINUTUZUMAB [Suspect]
     Active Substance: OBINUTUZUMAB
     Dosage: 4TH LINE, 1 CYCLE
     Route: 042
     Dates: start: 20191115, end: 20191118
  12. PEMBROLIZUMAB [Suspect]
     Active Substance: PEMBROLIZUMAB
     Indication: Diffuse large B-cell lymphoma
     Dosage: 2ND LINE, 3 CYCLE
     Route: 065
     Dates: start: 20190911, end: 20191106

REACTIONS (1)
  - Neurotoxicity [Unknown]
